FAERS Safety Report 4822584-1 (Version None)
Quarter: 2005Q4

REPORT INFORMATION
  Report Type: 
  Country: None (occurrence: None)
  Receive Date: 20051104
  Receipt Date: 20051024
  Transmission Date: 20060501
  Serious: Yes (Life-Threatening)
  Sender: FDA-Public Use
  Company Number: 05H-055-0300446-00

PATIENT
  Age: 73 Year
  Sex: Male
  Weight: 65 kg

DRUGS (13)
  1. PRECEDEX [Suspect]
     Indication: SEDATION
     Dosage: 90 ML/HR; 13 ML/HR; 10 ML/HR; 8 ML/HR; 6 ML/HR; 7 ML/HR, CONTINUOUS, INTRAVENOUS
     Route: 042
     Dates: start: 20050530, end: 20050530
  2. PRECEDEX [Suspect]
     Indication: SEDATION
     Dosage: 90 ML/HR; 13 ML/HR; 10 ML/HR; 8 ML/HR; 6 ML/HR; 7 ML/HR, CONTINUOUS, INTRAVENOUS
     Route: 042
     Dates: start: 20050530, end: 20050531
  3. PRECEDEX [Suspect]
     Indication: SEDATION
     Dosage: 90 ML/HR; 13 ML/HR; 10 ML/HR; 8 ML/HR; 6 ML/HR; 7 ML/HR, CONTINUOUS, INTRAVENOUS
     Route: 042
     Dates: start: 20050531, end: 20050531
  4. CIPROFLOXACIN [Suspect]
     Dosage: 400 MG, 2 IN 1 D, INTRAVENOUS
     Route: 042
     Dates: start: 20050528, end: 20050530
  5. CORDARONE [Suspect]
     Indication: ATRIAL FIBRILLATION
     Dates: start: 20050530, end: 20050531
  6. MORPHINE [Suspect]
     Dosage: 4 GM, AS NEEDED, INTRAVENOUS
     Route: 042
  7. CLINDAMYCIN HCL [Concomitant]
  8. LAXOBERON (SODIUM PICOSULFATE) [Concomitant]
  9. DUPHALAC [Concomitant]
  10. PREDNISOLONE [Concomitant]
  11. FUROSEMIDE [Concomitant]
  12. LEVOPHED [Concomitant]
  13. TAZOCIN (PIP/TAZO) [Concomitant]

REACTIONS (2)
  - TORSADE DE POINTES [None]
  - VENTRICULAR EXTRASYSTOLES [None]
